FAERS Safety Report 18631274 (Version 1)
Quarter: 2020Q4

REPORT INFORMATION
  Report Type: Spontaneous
  Country: AU (occurrence: AU)
  Receive Date: 20201218
  Receipt Date: 20201218
  Transmission Date: 20210114
  Serious: No
  Sender: FDA-Public Use
  Company Number: AU-LUPIN PHARMACEUTICALS INC.-2020-05358

PATIENT
  Age: 19 Year
  Sex: Female

DRUGS (3)
  1. MORPHINE [Suspect]
     Active Substance: MORPHINE
     Indication: ANALGESIC THERAPY
     Dosage: 4 MILLIGRAM
     Route: 042
  2. SYNTOCINON [Suspect]
     Active Substance: OXYTOCIN
     Indication: POSTPARTUM HAEMORRHAGE
     Dosage: 20IU IN 20ML
     Route: 065
  3. TERBUTALINE [Suspect]
     Active Substance: TERBUTALINE
     Indication: TOCOLYSIS
     Dosage: UNK
     Route: 058

REACTIONS (1)
  - Maternal exposure during delivery [Unknown]
